FAERS Safety Report 8834048 (Version 1)
Quarter: 2012Q4

REPORT INFORMATION
  Report Type: 
  Country: NL (occurrence: NL)
  Receive Date: 20121010
  Receipt Date: 20121010
  Transmission Date: 20130627
  Serious: Yes (Other)
  Sender: FDA-Public Use
  Company Number: NL-WATSON-2012-17117

PATIENT
  Sex: Female

DRUGS (1)
  1. METRONIDAZOLE (UNKNOWN) [Suspect]
     Indication: AMOEBIASIS
     Dosage: 500 mg, unknown
     Route: 065

REACTIONS (4)
  - Palpitations [Not Recovered/Not Resolved]
  - Muscular weakness [Not Recovered/Not Resolved]
  - Tongue discolouration [Not Recovered/Not Resolved]
  - Malaise [None]
